FAERS Safety Report 4343872-1 (Version None)
Quarter: 2004Q2

REPORT INFORMATION
  Report Type: 
  Country: None (occurrence: None)
  Receive Date: 20040421
  Receipt Date: 20040421
  Transmission Date: 20050107
  Serious: Yes (Hospitalization)
  Sender: FDA-Public Use
  Company Number: None

PATIENT

DRUGS (4)
  1. DIAZEPAM [Suspect]
     Dosage: 10 MG BID 20 MG Q HS
  2. TRAZODONE HCL [Suspect]
     Dosage: 250 MG PO Q HS
     Route: 048
  3. RISPERIDONE [Suspect]
     Dosage: 5 MG QHS
  4. LITHIUM 600 QHS AND 300 MG Q AM [Suspect]
     Dosage: 600 QHS + 300 MG QAM

REACTIONS (1)
  - MENTAL STATUS CHANGES [None]
